FAERS Safety Report 23817237 (Version 4)
Quarter: 2024Q2

REPORT INFORMATION
  Report Type: Report from Study
  Country: CA (occurrence: CA)
  Receive Date: 20240505
  Receipt Date: 20240610
  Transmission Date: 20240716
  Serious: Yes (Other)
  Sender: FDA-Public Use
  Company Number: CA-JNJFOC-20240473074

PATIENT
  Age: 61 Year
  Sex: Male

DRUGS (1)
  1. SIMPONI [Suspect]
     Active Substance: GOLIMUMAB
     Indication: Psoriatic arthropathy
     Dosage: 50.00 MG / 0.50 ML
     Route: 058

REACTIONS (5)
  - Psoriatic arthropathy [Not Recovered/Not Resolved]
  - Device leakage [Unknown]
  - Incorrect dose administered [Unknown]
  - Device malfunction [Unknown]
  - Accidental exposure to product [Unknown]

NARRATIVE: CASE EVENT DATE: 20240401
